FAERS Safety Report 17005755 (Version 5)
Quarter: 2023Q4

REPORT INFORMATION
  Report Type: Spontaneous
  Country: US (occurrence: US)
  Receive Date: 20191107
  Receipt Date: 20231023
  Transmission Date: 20240110
  Serious: Yes (Hospitalization)
  Sender: FDA-Public Use
  Company Number: US-PFIZER INC-2019476312

PATIENT
  Age: 61 Year
  Sex: Male

DRUGS (2)
  1. LEVOFLOXACIN [Suspect]
     Active Substance: LEVOFLOXACIN
     Indication: Abscess limb
     Dosage: 750 MG, 1X/DAY
  2. LEVOFLOXACIN [Suspect]
     Active Substance: LEVOFLOXACIN
     Dosage: 750 MG, ALTERNATE DAY

REACTIONS (4)
  - Accidental overdose [Unknown]
  - Intentional product misuse [Unknown]
  - Myoclonus [Recovered/Resolved]
  - Off label use [Unknown]
